FAERS Safety Report 14615248 (Version 1)
Quarter: 2018Q1

REPORT INFORMATION
  Report Type: Report from Study
  Country: US (occurrence: US)
  Receive Date: 20180308
  Receipt Date: 20180308
  Transmission Date: 20180509
  Serious: Yes (Other)
  Sender: FDA-Public Use
  Company Number: US-BIOGEN-2018BI00534927

PATIENT
  Age: 33 Year
  Sex: Female

DRUGS (1)
  1. TYSABRI [Suspect]
     Active Substance: NATALIZUMAB
     Indication: MULTIPLE SCLEROSIS
     Route: 065
     Dates: start: 20171229

REACTIONS (10)
  - Asthenia [Unknown]
  - Vomiting [Unknown]
  - Drug dose omission [Unknown]
  - Dehydration [Unknown]
  - Feeding disorder [Unknown]
  - Insomnia [Unknown]
  - Weight decreased [Unknown]
  - Oesophageal stenosis [Unknown]
  - Depression [Unknown]
  - Anxiety [Unknown]

NARRATIVE: CASE EVENT DATE: 201802
